FAERS Safety Report 6114207-9 (Version None)
Quarter: 2009Q1

REPORT INFORMATION
  Report Type: 
  Country: None (occurrence: None)
  Receive Date: 20090312
  Receipt Date: 20080715
  Transmission Date: 20090719
  Serious: No
  Sender: FDA-Public Use
  Company Number: US-ABBOTT-08P-163-0463611-00

PATIENT

DRUGS (4)
  1. DEPAKOTE [Suspect]
     Indication: AFFECTIVE DISORDER
     Route: 048
  2. DEPAKOTE [Suspect]
  3. DEPAKOTE [Suspect]
  4. DEPAKOTE ER [Suspect]
     Indication: AFFECTIVE DISORDER

REACTIONS (1)
  - TREMOR [None]
